FAERS Safety Report 5039490-2 (Version None)
Quarter: 2006Q2

REPORT INFORMATION
  Report Type: 
  Country: None (occurrence: None)
  Receive Date: 20060629
  Receipt Date: 20060623
  Transmission Date: 20061013
  Serious: Yes (Other)
  Sender: FDA-Public Use
  Company Number: 2006UW13374

PATIENT
  Age: 50 Year
  Sex: Male
  Weight: 95.3 kg

DRUGS (2)
  1. SEROQUEL [Suspect]
     Indication: ANXIETY
     Route: 048
     Dates: start: 20060101
  2. SEROQUEL [Suspect]
     Indication: SLEEP DISORDER
     Route: 048
     Dates: start: 20060101

REACTIONS (6)
  - COUGH [None]
  - HUNGER [None]
  - LOSS OF CONSCIOUSNESS [None]
  - PALPITATIONS [None]
  - ROAD TRAFFIC ACCIDENT [None]
  - SYNCOPE [None]
